FAERS Safety Report 8602405-1 (Version None)
Quarter: 2012Q3

REPORT INFORMATION
  Report Type: 
  Country: None (occurrence: None)
  Receive Date: 20120817
  Receipt Date: 20120813
  Transmission Date: 20120928
  Serious: Yes (Other)
  Sender: FDA-Public Use
  Company Number: US-PFIZER INC-2011297719

PATIENT
  Age: 43 Year
  Sex: Female
  Weight: 73 kg

DRUGS (5)
  1. DEPO-PROVERA [Suspect]
     Indication: MUSCLE SPASMS
  2. INSULIN [Concomitant]
     Indication: DIABETES MELLITUS
     Dosage: UNK
  3. DEPO-PROVERA [Suspect]
     Indication: ENDOMETRIOSIS
     Dosage: UNK
     Dates: start: 20030101
  4. DEPO-PROVERA [Suspect]
     Indication: PAIN
  5. DEPO-PROVERA [Suspect]
     Indication: DISCOMFORT

REACTIONS (5)
  - MALAISE [None]
  - MUSCLE SPASMS [None]
  - HEADACHE [None]
  - MENSTRUAL DISORDER [None]
  - STAPHYLOCOCCAL INFECTION [None]
